FAERS Safety Report 6822095-8 (Version None)
Quarter: 2010Q3

REPORT INFORMATION
  Report Type: 
  Country: None (occurrence: None)
  Receive Date: 20100706
  Receipt Date: 20100706
  Transmission Date: 20110219
  Serious: Yes (Hospitalization)
  Sender: FDA-Public Use
  Company Number: None

PATIENT
  Age: 41 Year
  Sex: Female
  Weight: 68 kg

DRUGS (7)
  1. TYSABRI [Suspect]
     Indication: MULTIPLE SCLEROSIS
     Dosage: 300MG Q 4 WEEKS IV
     Route: 042
     Dates: start: 20090701, end: 20100614
  2. TRAMDAOL [Concomitant]
  3. LORAZEPAM [Concomitant]
  4. DRONABINOL [Concomitant]
  5. LEVORA 0.15/30-28 [Concomitant]
  6. VENLAFAXINE [Concomitant]
  7. AMPYRA [Concomitant]

REACTIONS (15)
  - BALANCE DISORDER [None]
  - DYSPNOEA [None]
  - ERYTHEMA [None]
  - EYE PAIN [None]
  - EYELID OEDEMA [None]
  - HERPES SIMPLEX [None]
  - HYPERACUSIS [None]
  - HYPOPHAGIA [None]
  - MENINGITIS VIRAL [None]
  - MUSCULOSKELETAL STIFFNESS [None]
  - NAUSEA [None]
  - OCULAR HYPERAEMIA [None]
  - PHOTOPHOBIA [None]
  - SWELLING FACE [None]
  - VISUAL IMPAIRMENT [None]
